FAERS Safety Report 9190576 (Version 2)
Quarter: 2013Q2

REPORT INFORMATION
  Report Type: Spontaneous
  Country: US (occurrence: None)
  Receive Date: 20120703
  Receipt Date: 20121031
  Transmission Date: 20140414
  Serious: Yes (Other)
  Sender: FDA-Public Use
  Company Number: PHEH2012US005384

PATIENT
  Age: 44 Year
  Sex: Male

DRUGS (3)
  1. GILENYA [Suspect]
     Indication: MULTIPLE SCLEROSIS
     Route: 048
     Dates: start: 201104, end: 20120315
  2. CRESTOR (ROSUVASTATIN CALCIUM) [Concomitant]
  3. VIAGRA (SILDENAFIL CITRATE) [Concomitant]

REACTIONS (3)
  - Ear pain [None]
  - Alanine aminotransferase increased [None]
  - Aspartate aminotransferase increased [None]
